FAERS Safety Report 4855452-X (Version None)
Quarter: 2005Q4

REPORT INFORMATION
  Report Type: 
  Country: None (occurrence: None)
  Receive Date: 20051214
  Receipt Date: 20051207
  Transmission Date: 20060501
  Serious: Yes (Other)
  Sender: FDA-Public Use
  Company Number: 2005BI008300

PATIENT
  Age: 57 Year
  Sex: Female

DRUGS (15)
  1. AVONEX [Suspect]
     Indication: MULTIPLE SCLEROSIS
     Dosage: 30 UG;QW;IM
     Route: 030
     Dates: start: 19960601, end: 20030101
  2. AVONEX [Suspect]
     Indication: MULTIPLE SCLEROSIS
     Dosage: 30 UG;QW;IM
     Route: 030
     Dates: start: 20050618
  3. ALBUTEROL [Concomitant]
  4. FLONASE [Concomitant]
  5. HYDROCHLORATHIAZIDE [Concomitant]
  6. POTASSIUM [Concomitant]
  7. LISINOPRIL [Concomitant]
  8. PROTONIX [Concomitant]
  9. SINGULAIR [Concomitant]
  10. ASPIRIN [Concomitant]
  11. CALCIUM GLUCONATE [Concomitant]
  12. VITAMIN E [Concomitant]
  13. FOLIC ACID [Concomitant]
  14. NEURONTIN [Concomitant]
  15. LEXAPRO [Concomitant]

REACTIONS (6)
  - ADENOCARCINOMA [None]
  - AMNESIA [None]
  - COGNITIVE DISORDER [None]
  - COLON CANCER STAGE III [None]
  - LYMPHOMA [None]
  - POST PROCEDURAL COMPLICATION [None]
